FAERS Safety Report 11150825 (Version 1)
Quarter: 2015Q2

REPORT INFORMATION
  Report Type: Spontaneous
  Country: NO (occurrence: None)
  Receive Date: 20150528
  Receipt Date: 20150528
  Transmission Date: 20150821
  Serious: Yes (Other)
  Sender: FDA-Public Use
  Company Number: NSR_02094_2015

PATIENT
  Age: 55 Year
  Sex: Female

DRUGS (3)
  1. TRAMADOL (TRAMADOL) [Suspect]
     Active Substance: TRAMADOL
     Indication: PAIN
     Dosage: 100 MG, NO MORE THAN 3 TIMES DAILY)
  2. DULOXETINE (DULOXETINE) [Suspect]
     Active Substance: DULOXETINE
     Indication: PAIN
  3. CIPROFLOXACIN. [Concomitant]
     Active Substance: CIPROFLOXACIN

REACTIONS (14)
  - Hyperhidrosis [None]
  - Diarrhoea [None]
  - Tremor [None]
  - Hyperreflexia [None]
  - Pain in extremity [None]
  - Drug interaction [None]
  - Hypertonia [None]
  - Overdose [None]
  - Pyrexia [None]
  - Hypertension [None]
  - Confusional state [None]
  - Tachycardia [None]
  - Serotonin syndrome [None]
  - Anxiety [None]
